FAERS Safety Report 17405327 (Version 3)
Quarter: 2020Q1

REPORT INFORMATION
  Report Type: Report from Study
  Country: None (occurrence: DE)
  Receive Date: 20200212
  Receipt Date: 20200222
  Transmission Date: 20200409
  Serious: Yes (Hospitalization, Other)
  Sender: FDA-Public Use
  Company Number: DE-ABBVIE-20K-062-3270107-00

PATIENT
  Age: 70 Year
  Sex: Female
  Weight: 54 kg

DRUGS (20)
  1. DUODOPA [Suspect]
     Active Substance: CARBIDOPA\LEVODOPA
     Dosage: CRD 2.4ML/H CRN 1.5ML/H ED 2.0ML
     Route: 050
  2. LYRICA [Concomitant]
     Active Substance: PREGABALIN
     Indication: ANXIETY
     Dosage: ONCE AT NOON
     Dates: start: 201911
  3. MAGNESIUM VERLA [Concomitant]
     Active Substance: MAGNESIUM
     Indication: SLEEP DISORDER
     Dosage: 1 TABLET IN THE MORNING
  4. IBUFLAM [Concomitant]
     Indication: ARTHRALGIA
  5. NIFEDIPIN [Concomitant]
     Active Substance: NIFEDIPINE
     Indication: BLOOD PRESSURE INCREASED
     Dosage: 20MG/ML DROPS
  6. LYRICA [Concomitant]
     Active Substance: PREGABALIN
     Indication: DEPRESSION
  7. VIGANTOLETTEN [Concomitant]
     Active Substance: CHOLECALCIFEROL
     Indication: PRODUCT USED FOR UNKNOWN INDICATION
  8. DUODOPA [Suspect]
     Active Substance: CARBIDOPA\LEVODOPA
     Indication: PARKINSON^S DISEASE
     Dosage: MD 3.5ML CRD 2.4ML/H CRN 1.5ML/H ED 1.8ML
     Route: 050
     Dates: start: 20120525
  9. MADOPAR DEPOT RETARD [Concomitant]
     Indication: PARKINSON^S DISEASE
     Dosage: 100MG/25MG, 1 CAPSULE AT NIGHT
     Dates: start: 201912
  10. LORMETAZEPAM [Concomitant]
     Active Substance: LORMETAZEPAM
     Indication: RESTLESSNESS
  11. NOVAMINSULFON [Concomitant]
     Active Substance: METAMIZOLE
     Indication: PYREXIA
  12. IBUFLAM [Concomitant]
     Indication: BONE PAIN
  13. ZOLPIDEM [Concomitant]
     Active Substance: ZOLPIDEM TARTRATE
     Indication: SLEEP DISORDER
  14. PANTOPRAZOLE [Concomitant]
     Active Substance: PANTOPRAZOLE
     Indication: PROPHYLAXIS
  15. MOVICOL [Concomitant]
     Active Substance: POLYETHYLENE GLYCOL 3350\POTASSIUM CHLORIDE\SODIUM BICARBONATE\SODIUM CHLORIDE
     Indication: CONSTIPATION
     Dosage: ONCE IN THE MORNING
  16. BUSCOPAN PLUS [Concomitant]
     Active Substance: ACETAMINOPHEN\BUTYLSCOPOLAMINE BROMIDE
     Indication: ABDOMINAL PAIN UPPER
  17. TORASEMID [Concomitant]
     Active Substance: TORSEMIDE
     Indication: FLUID RETENTION
     Dosage: 0.5 TABLET IN THE MORNING
  18. DULOXETIN [Concomitant]
     Active Substance: DULOXETINE
     Indication: PAIN
     Dosage: 1 TABLET IN THE MORNING
     Dates: start: 201912
  19. MIRTAZAPIN HEXAL [Concomitant]
     Active Substance: MIRTAZAPINE
     Indication: SLEEP DISORDER
     Dosage: 0.5 AT NINGHT
  20. NOVAMINSULFON [Concomitant]
     Active Substance: METAMIZOLE
     Indication: ABDOMINAL PAIN

REACTIONS (48)
  - Infection [Not Recovered/Not Resolved]
  - Aortic valve incompetence [Unknown]
  - Diarrhoea [Unknown]
  - Therapeutic product effect variable [Unknown]
  - Blood cholesterol increased [Unknown]
  - Blood urea increased [Unknown]
  - Mean cell haemoglobin decreased [Unknown]
  - Blood selenium decreased [Unknown]
  - Transferrin saturation decreased [Unknown]
  - Somatic symptom disorder [Unknown]
  - Panic disorder [Unknown]
  - Mood disorder due to a general medical condition [Unknown]
  - Pain [Unknown]
  - Red blood cell count decreased [Unknown]
  - Fungal infection [Unknown]
  - Cardiomyopathy [Unknown]
  - Depression [Unknown]
  - Kyphosis [Unknown]
  - Blood bilirubin decreased [Unknown]
  - Alpha 1 globulin increased [Unknown]
  - Fear [Unknown]
  - Drug dependence [Unknown]
  - Hypertension [Unknown]
  - Blood iron decreased [Unknown]
  - Vitamin B12 decreased [Unknown]
  - Vitamin D decreased [Unknown]
  - Pyrexia [Not Recovered/Not Resolved]
  - Dehydration [Not Recovered/Not Resolved]
  - Depression [Recovered/Resolved]
  - Depression [Recovered/Resolved]
  - Dystonia [Unknown]
  - Anxiety [Unknown]
  - C-reactive protein increased [Unknown]
  - Alanine aminotransferase decreased [Not Recovered/Not Resolved]
  - High density lipoprotein increased [Unknown]
  - Blood thyroid stimulating hormone decreased [Unknown]
  - Colitis ischaemic [Unknown]
  - Stoma site discharge [Not Recovered/Not Resolved]
  - Stoma site inflammation [Not Recovered/Not Resolved]
  - Incontinence [Unknown]
  - Tricuspid valve incompetence [Unknown]
  - Thyroxine free decreased [Unknown]
  - Blood triglycerides increased [Unknown]
  - Left ventricular failure [Unknown]
  - Torticollis [Unknown]
  - Haemoglobin decreased [Not Recovered/Not Resolved]
  - Haematocrit decreased [Unknown]
  - Fluid intake reduced [Unknown]

NARRATIVE: CASE EVENT DATE: 2016
